FAERS Safety Report 13199449 (Version 1)
Quarter: 2017Q1

REPORT INFORMATION
  Report Type: Spontaneous
  Country: JP (occurrence: JP)
  Receive Date: 20170208
  Receipt Date: 20170208
  Transmission Date: 20170428
  Serious: Yes (Hospitalization, Other)
  Sender: FDA-Public Use
  Company Number: JP-TEVA-737344ISR

PATIENT
  Age: 65 Year
  Sex: Male

DRUGS (2)
  1. IMIDAFENACIN [Concomitant]
     Active Substance: IMIDAFENACIN
     Indication: BENIGN PROSTATIC HYPERPLASIA
     Route: 065
  2. WARFARIN [Suspect]
     Active Substance: WARFARIN
     Indication: ATRIAL FIBRILLATION
     Dosage: 5.5 MILLIGRAM DAILY; FOR MORE THAN 10 YEARS
     Route: 065

REACTIONS (4)
  - Haematoma [Recovered/Resolved]
  - Paraplegia [Recovered/Resolved]
  - Urinary retention [Recovered/Resolved]
  - Oedema [Recovered/Resolved]
